FAERS Safety Report 25496632 (Version 1)
Quarter: 2025Q2

REPORT INFORMATION
  Report Type: Report from Study
  Country: US (occurrence: US)
  Receive Date: 20250630
  Receipt Date: 20250630
  Transmission Date: 20250716
  Serious: Yes (Other)
  Sender: ABBVIE
  Company Number: US-ABBVIE-6342011

PATIENT
  Sex: Female

DRUGS (1)
  1. REFRESH DIGITAL [Suspect]
     Active Substance: CARBOXYMETHYLCELLULOSE SODIUM\GLYCERIN\POLYSORBATE 80
     Indication: Foreign body sensation in eyes
     Route: 047

REACTIONS (3)
  - Cataract [Unknown]
  - Drug ineffective [Unknown]
  - Multiple use of single-use product [Unknown]
